FAERS Safety Report 4808234-9 (Version None)
Quarter: 2005Q4

REPORT INFORMATION
  Report Type: 
  Country: None (occurrence: None)
  Receive Date: 20051021
  Receipt Date: 20051005
  Transmission Date: 20060501
  Serious: Yes (Hospitalization, Disabling)
  Sender: FDA-Public Use
  Company Number: 12671

PATIENT
  Age: 10 Year
  Sex: Female

DRUGS (6)
  1. VINCRISTINE [Suspect]
     Indication: B-CELL LYMPHOMA
  2. METHOTREXATE [Concomitant]
  3. CYTOSINE [Concomitant]
  4. CYCLOPHOSPHAMIDE [Concomitant]
  5. PREDNISOLONE [Concomitant]
  6. ADRIAMYCIN PFS [Concomitant]

REACTIONS (13)
  - ALLODYNIA [None]
  - DRUG INEFFECTIVE [None]
  - FAECAL INCONTINENCE [None]
  - GUILLAIN-BARRE SYNDROME [None]
  - HYPERAESTHESIA [None]
  - HYPOAESTHESIA [None]
  - IATROGENIC INJURY [None]
  - INCORRECT ROUTE OF DRUG ADMINISTRATION [None]
  - NEUROTOXICITY [None]
  - PARAPARESIS [None]
  - PARAPLEGIA [None]
  - SENSORY LOSS [None]
  - URINARY RETENTION [None]
